FAERS Safety Report 20891506 (Version 6)
Quarter: 2022Q3

REPORT INFORMATION
  Report Type: Spontaneous
  Country: US (occurrence: US)
  Receive Date: 20220530
  Receipt Date: 20220926
  Transmission Date: 20221027
  Serious: Yes (Hospitalization)
  Sender: FDA-Public Use
  Company Number: US-CELGENE-USA-20211202573

PATIENT
  Age: 67 Year
  Sex: Male

DRUGS (4)
  1. POMALYST [Suspect]
     Active Substance: POMALIDOMIDE
     Indication: Plasma cell myeloma
     Dosage: 4 MILLIGRAM
     Route: 048
     Dates: start: 202009
  2. POMALYST [Suspect]
     Active Substance: POMALIDOMIDE
     Dosage: 2 MILLIGRAM
     Route: 048
     Dates: start: 202101
  3. POMALYST [Suspect]
     Active Substance: POMALIDOMIDE
     Dosage: TAKE 1 CAPSULE BY MOUTH DAILY ON DAY 1-14 OF A 28 DAY CYCLE .
     Route: 048
     Dates: start: 20200907
  4. POMALYST [Suspect]
     Active Substance: POMALIDOMIDE
     Dosage: TAKE 1 CAPSULE (2MG TOTAL) BY MOUTH EVERY DAY ON DAYS 1-14 OF 28 DAY CYCLE
     Route: 048
     Dates: start: 20200709

REACTIONS (5)
  - Adverse event [Unknown]
  - Product dose omission issue [Unknown]
  - Heart rate increased [Unknown]
  - Fatigue [Unknown]
  - Off label use [Unknown]
